FAERS Safety Report 4918616-2 (Version None)
Quarter: 2006Q1

REPORT INFORMATION
  Report Type: 
  Country: None (occurrence: None)
  Receive Date: 20060221
  Receipt Date: 20060221
  Transmission Date: 20060701
  Serious: Yes (Life-Threatening)
  Sender: FDA-Public Use
  Company Number: None

PATIENT
  Age: 48 Year
  Sex: Male
  Weight: 86.1834 kg

DRUGS (1)
  1. ZOLOFT [Suspect]
     Indication: DEPRESSION
     Dosage: 200MG    HS   PO
     Route: 048
     Dates: start: 20040901, end: 20051210

REACTIONS (6)
  - DRUG INEFFECTIVE [None]
  - ECONOMIC PROBLEM [None]
  - INDIFFERENCE [None]
  - MALAISE [None]
  - SEXUAL OFFENCE [None]
  - TREATMENT NONCOMPLIANCE [None]
